FAERS Safety Report 26065441 (Version 2)
Quarter: 2025Q4

REPORT INFORMATION
  Report Type: Spontaneous
  Country: US (occurrence: US)
  Receive Date: 20251119
  Receipt Date: 20251127
  Transmission Date: 20260117
  Serious: No
  Sender: ABBVIE
  Company Number: US-ABBVIE-6554661

PATIENT
  Age: 82 Year
  Sex: Male
  Weight: 92.986 kg

DRUGS (4)
  1. SKYRIZI [Suspect]
     Active Substance: RISANKIZUMAB-RZAA
     Indication: Crohn^s disease
     Dosage: FIRST ADMIN DATE: 2025
     Route: 058
  2. SKYRIZI [Suspect]
     Active Substance: RISANKIZUMAB-RZAA
     Indication: Crohn^s disease
     Dosage: LAST ADMIN DATE: 2025, FORM STRENGTH: 600 MG, FIRST INFUSION
     Route: 042
     Dates: start: 202506, end: 202506
  3. SKYRIZI [Suspect]
     Active Substance: RISANKIZUMAB-RZAA
     Indication: Crohn^s disease
     Dosage: LAST ADMIN DATE: 2025, FORM STRENGTH: 600 MG, SECOND INFUSION
     Route: 042
     Dates: start: 202507, end: 202507
  4. SKYRIZI [Suspect]
     Active Substance: RISANKIZUMAB-RZAA
     Indication: Crohn^s disease
     Dosage: LAST ADMIN DATE: 2025, FORM STRENGTH: 600 MG, THIRD INFUSION
     Route: 042
     Dates: start: 202508, end: 202508

REACTIONS (2)
  - Wrong technique in product usage process [Unknown]
  - Fear [Unknown]

NARRATIVE: CASE EVENT DATE: 20250101
